FAERS Safety Report 6414821-7 (Version None)
Quarter: 2009Q4

REPORT INFORMATION
  Report Type: 
  Country: None (occurrence: None)
  Receive Date: 20091026
  Receipt Date: 20091026
  Transmission Date: 20100525
  Serious: Yes (Other)
  Sender: FDA-Public Use
  Company Number: None

PATIENT
  Age: 27 Year
  Sex: Female
  Weight: 47.6277 kg

DRUGS (1)
  1. RESTASIS [Suspect]
     Indication: KERATOCONJUNCTIVITIS SICCA
     Dosage: 1 DROP 2 TIMES/DAY
     Dates: start: 20091020, end: 20091021

REACTIONS (8)
  - CONDITION AGGRAVATED [None]
  - DRY EYE [None]
  - EYE DISCHARGE [None]
  - EYE IRRITATION [None]
  - NO THERAPEUTIC RESPONSE [None]
  - OCULAR HYPERAEMIA [None]
  - RHINORRHOEA [None]
  - VISION BLURRED [None]
